FAERS Safety Report 11744549 (Version 3)
Quarter: 2019Q3

REPORT INFORMATION
  Report Type: Spontaneous
  Country: US (occurrence: US)
  Receive Date: 20151116
  Receipt Date: 20190912
  Transmission Date: 20191004
  Serious: Yes (Death, Hospitalization, Other)
  Sender: FDA-Public Use
  Company Number: US-ELI_LILLY_AND_COMPANY-US201511002950

PATIENT
  Sex: Male

DRUGS (1)
  1. ZYPREXA [Suspect]
     Active Substance: OLANZAPINE
     Indication: RELAXATION THERAPY
     Dosage: UNK, UNKNOWN
     Route: 048
     Dates: start: 2008, end: 2011

REACTIONS (8)
  - Sepsis [Fatal]
  - Diabetic complication [Fatal]
  - Diabetes mellitus inadequate control [Unknown]
  - Off label use [Recovered/Resolved]
  - Peripheral swelling [Unknown]
  - Ketoacidosis [Unknown]
  - Diabetic ketoacidosis [Fatal]
  - Pancreatitis [Fatal]
